FAERS Safety Report 9274984 (Version 2)
Quarter: 2013Q2

REPORT INFORMATION
  Report Type: Report from Study
  Country: US (occurrence: US)
  Receive Date: 20130507
  Receipt Date: 20130620
  Transmission Date: 20140414
  Serious: Yes (Hospitalization)
  Sender: FDA-Public Use
  Company Number: US-ELI_LILLY_AND_COMPANY-US201304008793

PATIENT
  Age: 62 Year
  Sex: Female
  Weight: 69.84 kg

DRUGS (22)
  1. TERIPARATIDE [Suspect]
     Indication: OSTEOPOROSIS
     Dosage: 20 UG, QD
     Route: 058
     Dates: start: 20130401, end: 20130415
  2. TERIPARATIDE [Suspect]
     Indication: SPINAL FRACTURE
     Dosage: 20 UG, QD
     Route: 058
     Dates: start: 20130615
  3. OXYCODONE [Concomitant]
     Indication: PAIN
     Dosage: 10 MG, PRN
  4. TEMAZEPAM [Concomitant]
     Indication: SLEEP DISORDER
     Dosage: 15 MG, PRN
  5. IPRATROPIUM BROMIDE W/SALBUTAMOL SULFATE [Concomitant]
     Dosage: 1 DF, QID
  6. NITROSTAT [Concomitant]
     Indication: CARDIAC DISORDER
     Dosage: 0.4 MG, PRN
  7. MINITRAN                           /00003201/ [Concomitant]
     Dosage: 1 DF, QD
  8. PROTONIX [Concomitant]
     Dosage: 40 MG, QD
  9. ASPIRIN [Concomitant]
     Dosage: UNK
     Dates: end: 20130509
  10. TAZTIA [Concomitant]
     Indication: CARDIAC DISORDER
     Dosage: 360 MG, QD
     Dates: end: 20130415
  11. PREDNISONE [Concomitant]
     Indication: SYSTEMIC LUPUS ERYTHEMATOSUS
     Dosage: 5 MG, QD
  12. FOLIC ACID [Concomitant]
     Dosage: 1 MG, QD
  13. PROZAC [Concomitant]
     Indication: DEPRESSION
     Dosage: 20 MG, BID
  14. PLETAL [Concomitant]
     Indication: INTERMITTENT CLAUDICATION
     Dosage: 100 MG, BID
  15. PLAQUENIL [Concomitant]
     Indication: SYSTEMIC LUPUS ERYTHEMATOSUS
     Dosage: 200 MG, BID
  16. TIZANIDINE [Concomitant]
     Indication: MYALGIA
     Dosage: 4 MG, BID
  17. POTASSIUM [Concomitant]
     Dosage: 20 MEQ, BID
  18. FUROSEMIDE [Concomitant]
     Indication: FLUID RETENTION
     Dosage: 40 MG, BID
  19. METOPROLOL [Concomitant]
     Indication: BLOOD PRESSURE
     Dosage: 25 MG, QD
  20. PLAVIX [Concomitant]
     Indication: CARDIAC DISORDER
     Dosage: 75 MG, QD
  21. SIMVASTATIN [Concomitant]
     Indication: BLOOD CHOLESTEROL
     Dosage: 20 MG, QD
  22. METHOTREXATE [Concomitant]
     Indication: SYSTEMIC LUPUS ERYTHEMATOSUS
     Dosage: 7.5 MG, WEEKLY (1/W)

REACTIONS (1)
  - Cerebrovascular accident [Recovered/Resolved with Sequelae]
